FAERS Safety Report 9220379 (Version 3)
Quarter: 2013Q3

REPORT INFORMATION
  Report Type: Spontaneous
  Country: DE (occurrence: DE)
  Receive Date: 20130409
  Receipt Date: 20130830
  Transmission Date: 20140515
  Serious: Yes (Death, Life-Threatening, Hospitalization)
  Sender: FDA-Public Use
  Company Number: DE-ROCHE-1212053

PATIENT
  Age: 78 Year
  Sex: Female

DRUGS (12)
  1. ROACTEMRA [Suspect]
     Indication: RHEUMATOID ARTHRITIS
     Route: 042
     Dates: start: 20120529, end: 20130227
  2. ROACTEMRA [Suspect]
     Route: 065
     Dates: start: 20121107
  3. ROACTEMRA [Suspect]
     Route: 065
     Dates: start: 20121213
  4. ROACTEMRA [Suspect]
     Route: 065
     Dates: start: 20130117
  5. ROACTEMRA [Suspect]
     Route: 065
     Dates: start: 20130221
  6. METHOTREXATE [Suspect]
     Indication: RHEUMATOID ARTHRITIS
     Route: 048
     Dates: start: 201005, end: 20130227
  7. PREDNISONE [Suspect]
     Indication: RHEUMATOID ARTHRITIS
     Route: 048
     Dates: start: 200903
  8. PREDNISONE [Suspect]
     Route: 048
  9. METAMIZOL [Concomitant]
     Indication: PAIN
     Route: 048
     Dates: end: 2009
  10. BISOPROLOL [Concomitant]
     Indication: HYPERTENSION
     Route: 048
  11. EXFORGE [Concomitant]
     Indication: HYPERTENSION
     Dosage: 5/80 MG
     Route: 048
  12. OMEPRAZOLE [Concomitant]
     Indication: GASTRITIS
     Route: 048

REACTIONS (7)
  - Endocarditis [Fatal]
  - Pyrexia [Unknown]
  - Enteritis [Unknown]
  - Syncope [Unknown]
  - Performance status decreased [Unknown]
  - Thrombocytopenia [Unknown]
  - Procalcitonin increased [Unknown]
